FAERS Safety Report 12317127 (Version 3)
Quarter: 2020Q1

REPORT INFORMATION
  Report Type: Spontaneous
  Country: BR (occurrence: BR)
  Receive Date: 20160429
  Receipt Date: 20200103
  Transmission Date: 20200409
  Serious: Yes (Other)
  Sender: FDA-Public Use
  Company Number: BR-EMD SERONO-7099268

PATIENT
  Sex: Female

DRUGS (2)
  1. REBIF [Suspect]
     Active Substance: INTERFERON BETA-1A
     Indication: RELAPSING-REMITTING MULTIPLE SCLEROSIS
     Dosage: UNIT DOSE 0.5 ML
     Route: 058
     Dates: start: 20100514
  2. BIO-MANGUINHOS BETAINTERFERONA 1A 44 MCG [Suspect]
     Active Substance: INTERFERON BETA-1A
     Indication: MULTIPLE SCLEROSIS
     Dosage: THERAPY START DATE: 04-OCT-2019
     Route: 058

REACTIONS (13)
  - Fatigue [Not Recovered/Not Resolved]
  - Pain [Not Recovered/Not Resolved]
  - Injection site bruising [Recovering/Resolving]
  - Multiple sclerosis relapse [Recovering/Resolving]
  - Chills [Not Recovered/Not Resolved]
  - Wrong technique in product usage process [Recovering/Resolving]
  - Headache [Not Recovered/Not Resolved]
  - Injection site pain [Not Recovered/Not Resolved]
  - Injection site erythema [Not Recovered/Not Resolved]
  - Glaucoma [Not Recovered/Not Resolved]
  - Stress [Recovering/Resolving]
  - Anxiety [Recovering/Resolving]
  - Nervousness [Recovering/Resolving]

NARRATIVE: CASE EVENT DATE: 2010
